FAERS Safety Report 8530532-6 (Version None)
Quarter: 2012Q3

REPORT INFORMATION
  Report Type: 
  Country: None (occurrence: None)
  Receive Date: 20120723
  Receipt Date: 20120710
  Transmission Date: 20120928
  Serious: Yes (Life-Threatening, Hospitalization)
  Sender: FDA-Public Use
  Company Number: JP-CELGENEUS-087-21880-12052783

PATIENT
  Sex: Male
  Weight: 57 kg

DRUGS (15)
  1. REVLIMID [Suspect]
     Indication: MULTIPLE MYELOMA
     Dosage: 7.5 MILLIGRAM
     Route: 048
     Dates: start: 20120306, end: 20120424
  2. AMODIN OD [Concomitant]
     Indication: HYPERTENSION
     Route: 048
     Dates: start: 20090901
  3. LOXONIN [Concomitant]
     Route: 048
     Dates: start: 20111215
  4. DEXAMETHASONE ACETATE [Suspect]
     Route: 048
     Dates: start: 20120611
  5. METOPROLOL TARTRATE [Suspect]
     Indication: HYPERTENSION
     Route: 048
     Dates: start: 20061201, end: 20120523
  6. CANDESARTAN CILEXETIL [Concomitant]
     Indication: HYPERTENSION
     Route: 048
     Dates: start: 20061201
  7. ALLEGRA [Concomitant]
     Indication: PROPHYLAXIS
     Route: 048
     Dates: start: 20120403
  8. REVLIMID [Suspect]
     Route: 048
     Dates: start: 20120601
  9. ASPIRIN [Concomitant]
     Indication: ATHEROSCLEROSIS PROPHYLAXIS
     Route: 048
     Dates: start: 20061201
  10. RABEPRAZOLE SODIUM [Concomitant]
     Indication: GASTRITIS PROPHYLAXIS
     Route: 048
     Dates: start: 20061201
  11. MAGMITT [Concomitant]
     Indication: CONSTIPATION
     Route: 048
     Dates: start: 20080401
  12. REVLIMID [Suspect]
     Dosage: 5 MILLIGRAM
     Route: 048
     Dates: start: 20120501, end: 20120521
  13. DOXAZOSIN MESYLATE [Concomitant]
     Indication: HYPERTENSION
     Route: 048
     Dates: start: 20061201
  14. PURSENNID [Concomitant]
     Indication: CONSTIPATION
     Route: 048
     Dates: start: 20080401
  15. DEXAMETHASONE ACETATE [Suspect]
     Indication: MULTIPLE MYELOMA
     Dosage: 5.7143 MILLIGRAM
     Route: 048
     Dates: start: 20120306, end: 20120515

REACTIONS (4)
  - SICK SINUS SYNDROME [None]
  - BRONCHOPNEUMONIA [None]
  - EOSINOPHILIA [None]
  - RASH [None]
